FAERS Safety Report 9831252 (Version 1)
Quarter: 2014Q1

REPORT INFORMATION
  Report Type: Report from Study
  Country: US (occurrence: US)
  Receive Date: 20140121
  Receipt Date: 20140121
  Transmission Date: 20141002
  Serious: Yes (Other)
  Sender: FDA-Public Use
  Company Number: US-ROCHE-1335592

PATIENT
  Age: 8 Year
  Sex: Male
  Weight: 33.5 kg

DRUGS (2)
  1. NUTROPIN AQ [Suspect]
     Indication: PRADER-WILLI SYNDROME
     Route: 058
  2. LEXAPRO [Concomitant]
     Indication: AGGRESSION
     Route: 048

REACTIONS (3)
  - Lung disorder [Unknown]
  - Hypotonia [Unknown]
  - Aggression [Unknown]
